FAERS Safety Report 8292559-1 (Version None)
Quarter: 2012Q2

REPORT INFORMATION
  Report Type: 
  Country: None (occurrence: None)
  Receive Date: 20120417
  Receipt Date: 20110927
  Transmission Date: 20120825
  Serious: No
  Sender: FDA-Public Use
  Company Number: US-ASTRAZENECA-2011SE58435

PATIENT
  Age: 54 Year
  Sex: Male

DRUGS (3)
  1. NEURONTIN [Suspect]
     Route: 065
  2. LYRICA [Concomitant]
  3. NEXIUM [Suspect]
     Route: 048

REACTIONS (10)
  - NEUROPATHY PERIPHERAL [None]
  - DISORIENTATION [None]
  - HAEMOCHROMATOSIS [None]
  - GAIT DISTURBANCE [None]
  - HEPATITIS C [None]
  - DIABETES MELLITUS [None]
  - BRAIN OEDEMA [None]
  - EMPHYSEMA [None]
  - CHRONIC OBSTRUCTIVE PULMONARY DISEASE [None]
  - HALLUCINATION, VISUAL [None]
